FAERS Safety Report 4703753-8 (Version None)
Quarter: 2005Q2

REPORT INFORMATION
  Report Type: 
  Country: None (occurrence: None)
  Receive Date: 20050630
  Receipt Date: 20050622
  Transmission Date: 20051028
  Serious: Yes (Hospitalization, Disabling)
  Sender: FDA-Public Use
  Company Number: GBWYE766522JUN05

PATIENT
  Sex: Male
  Weight: 102 kg

DRUGS (8)
  1. ENBREL [Suspect]
     Indication: RHEUMATOID ARTHRITIS
     Route: 058
     Dates: start: 20041125, end: 20050311
  2. PREDNISOLONE [Concomitant]
  3. ALENDRONATE SODIUM [Concomitant]
  4. NAPROXEN [Concomitant]
  5. FERROUS SULFATE [Concomitant]
  6. MORPHINE SULFATE [Concomitant]
  7. LANSOPRAZOLE [Concomitant]
  8. NIFEDIPINE [Concomitant]

REACTIONS (5)
  - ILEUS PARALYTIC [None]
  - LOWER RESPIRATORY TRACT INFECTION [None]
  - PHARYNGEAL FISTULA [None]
  - RESPIRATORY FAILURE [None]
  - SEPSIS [None]
